FAERS Safety Report 5875992-4 (Version None)
Quarter: 2008Q3

REPORT INFORMATION
  Report Type: 
  Country: None (occurrence: None)
  Receive Date: 20080910
  Receipt Date: 20080807
  Transmission Date: 20090109
  Serious: No
  Sender: FDA-Public Use
  Company Number: US-BAYER-200813331BCC

PATIENT
  Age: 75 Year
  Sex: Female
  Weight: 51 kg

DRUGS (2)
  1. ALEVE (CAPLET) [Suspect]
     Indication: CHEST PAIN
     Dosage: TOTAL DAILY DOSE: 220 MG  UNIT DOSE: 220 MG
     Route: 048
     Dates: start: 20080806
  2. LEVOTHYROXINE SODIUM [Concomitant]

REACTIONS (2)
  - NAUSEA [None]
  - VOMITING [None]
